FAERS Safety Report 22624102 (Version 1)
Quarter: 2023Q2

REPORT INFORMATION
  Report Type: Spontaneous
  Country: ID (occurrence: ID)
  Receive Date: 20230621
  Receipt Date: 20230621
  Transmission Date: 20230721
  Serious: Yes (Other)
  Sender: FDA-Public Use
  Company Number: ID-PFIZER INC-PV202300106205

PATIENT

DRUGS (2)
  1. METHYLPREDNISOLONE [Suspect]
     Active Substance: METHYLPREDNISOLONE
     Indication: Henoch-Schonlein purpura
     Dosage: 4 MG, DAILY
     Route: 064
  2. METHYLPREDNISOLONE [Suspect]
     Active Substance: METHYLPREDNISOLONE
     Dosage: 16 MG, DAILY
     Route: 064

REACTIONS (2)
  - Maternal exposure timing unspecified [Unknown]
  - Premature baby [Unknown]
